FAERS Safety Report 4867236-7 (Version None)
Quarter: 2005Q4

REPORT INFORMATION
  Report Type: 
  Country: None (occurrence: None)
  Receive Date: 20051222
  Receipt Date: 20051209
  Transmission Date: 20060501
  Serious: Yes (Hospitalization)
  Sender: FDA-Public Use
  Company Number: 2005153927

PATIENT
  Sex: Female
  Weight: 83.9154 kg

DRUGS (9)
  1. XALATAN [Suspect]
     Indication: GLAUCOMA
     Dosage: 2 DROP (1 DROP, EVERY NIGHT) OPHTHALMIC
     Route: 047
     Dates: start: 20050101
  2. LIPITOR [Suspect]
     Indication: ILL-DEFINED DISORDER
     Dosage: DAILY
     Dates: start: 20040101, end: 20040101
  3. NORVASC [Suspect]
     Indication: HYPERTENSION
     Dosage: 5 MG (5 MG DAILY)
     Dates: start: 20040101, end: 20050101
  4. AVANDIA [Suspect]
     Indication: DIABETES MELLITUS
     Dates: start: 20050101, end: 20050101
  5. AVALIDE [Suspect]
     Indication: HYPERTENSION
     Dosage: 300 MG   6 MONTHS
  6. SYNTHROID [Concomitant]
  7. CENTRUM SILVER (ASCORBIC ACID, CALCIUM, MINERAL NOS, RETINOL, TOCOPHER [Concomitant]
  8. GARLIC (GARLIC) [Concomitant]
  9. FISH OIL (FISH OIL) [Concomitant]

REACTIONS (6)
  - ARTHROPOD BITE [None]
  - CARDIAC PACEMAKER INSERTION [None]
  - DIABETIC GLAUCOMA [None]
  - DRUG DOSE OMISSION [None]
  - PRURITUS GENERALISED [None]
  - SKIN DISORDER [None]
